FAERS Safety Report 24326047 (Version 1)
Quarter: 2024Q3

REPORT INFORMATION
  Report Type: Report from Study
  Country: CA (occurrence: CA)
  Receive Date: 20240917
  Receipt Date: 20240917
  Transmission Date: 20241016
  Serious: Yes (Other)
  Sender: TAKEDA
  Company Number: CA-TAKEDA-2024TUS090518

PATIENT
  Sex: Female

DRUGS (4)
  1. VEDOLIZUMAB [Suspect]
     Active Substance: VEDOLIZUMAB
     Indication: Colitis ulcerative
     Dosage: 300 MILLIGRAM
     Route: 042
     Dates: start: 20210917
  2. VYVANSE [Suspect]
     Active Substance: LISDEXAMFETAMINE DIMESYLATE
     Indication: Product used for unknown indication
     Dosage: UNK
     Route: 065
  3. Salofalk [Concomitant]
     Dosage: UNK UNK, BID
     Dates: start: 20210728
  4. MESALAMINE [Concomitant]
     Active Substance: MESALAMINE
     Dosage: 1220 MILLIGRAM
     Dates: start: 2016

REACTIONS (3)
  - Rectal haemorrhage [Unknown]
  - Faeces soft [Unknown]
  - Abdominal pain [Unknown]
